FAERS Safety Report 6549351-5 (Version None)
Quarter: 2010Q1

REPORT INFORMATION
  Report Type: 
  Country: None (occurrence: None)
  Receive Date: 20100125
  Receipt Date: 20100113
  Transmission Date: 20100710
  Serious: Yes (Other)
  Sender: FDA-Public Use
  Company Number: PHHY2010US01825

PATIENT
  Sex: Female

DRUGS (1)
  1. TEGRETOL RETARD [Suspect]
     Dosage: UNK
     Route: 048

REACTIONS (2)
  - CONVULSION [None]
  - DRUG LEVEL CHANGED [None]
